FAERS Safety Report 8246256-9 (Version None)
Quarter: 2012Q1

REPORT INFORMATION
  Report Type: 
  Country: None (occurrence: None)
  Receive Date: 20120330
  Receipt Date: 20120321
  Transmission Date: 20120608
  Serious: Yes (Hospitalization)
  Sender: FDA-Public Use
  Company Number: US-BAYER-2011-107408

PATIENT
  Age: 29 Year
  Sex: Female
  Weight: 74.83 kg

DRUGS (13)
  1. YAZ [Suspect]
     Indication: ACNE
     Dosage: UNK
     Route: 048
     Dates: start: 20081030, end: 20100110
  2. LORTAB [Concomitant]
  3. KEFLEX [Concomitant]
  4. FLU VACCINE [Concomitant]
     Dosage: UNK
     Route: 045
     Dates: start: 20091019
  5. ACYCLOVIR [Concomitant]
     Dosage: 800 MG, UNK
     Route: 048
  6. FLUCONAZOLE [Concomitant]
     Dosage: 150 MG, OW
     Route: 048
     Dates: start: 20091013
  7. YAZ [Suspect]
     Indication: OVARIAN CYST
  8. METRONIDAZOLE [Concomitant]
     Dosage: 250 MG, TID
     Route: 048
     Dates: start: 20091013
  9. CEPHALEXIN [Concomitant]
     Dosage: 500 MG, UNK
     Route: 048
     Dates: start: 20091022
  10. DOXYCYCLINE [Concomitant]
     Dosage: 100 MG, BID
     Route: 048
     Dates: start: 20091013, end: 20091028
  11. HYDROCODONE BITARTRATE AND ACETAMINOPHEN [Concomitant]
     Route: 048
  12. NAPROXEN SODIUM [Concomitant]
     Dosage: 550 MG, BID
     Route: 048
     Dates: start: 20091010
  13. LIDOCAINE HCL VISCOUS [Concomitant]
     Dosage: 2 %, UNK

REACTIONS (7)
  - PULMONARY INFARCTION [None]
  - INJURY [None]
  - PAIN [None]
  - PULMONARY EMBOLISM [None]
  - CHEST PAIN [None]
  - DYSPNOEA [None]
  - PAIN IN EXTREMITY [None]
